FAERS Safety Report 9529907 (Version 1)
Quarter: 2013Q1

REPORT INFORMATION
  Report Type: Spontaneous
  Country: US (occurrence: None)
  Receive Date: 20130329
  Receipt Date: 20130329
  Transmission Date: 20140127
  Serious: No
  Sender: FDA-Public Use
  Company Number: 1000042832

PATIENT
  Age: 48 Year
  Sex: Female

DRUGS (12)
  1. LINZESS (LINACLOTIDE) (290 MICROGRAM, CAPSULES) [Suspect]
     Indication: IRRITABLE BOWEL SYNDROME
     Route: 048
     Dates: start: 20130219
  2. LINZESS (LINACLOTIDE) (290 MICROGRAM, CAPSULES) [Suspect]
     Indication: CONSTIPATION
     Route: 048
     Dates: start: 20130219
  3. ZANAFLEX (TIZANIDINE HYDROCHLORIDE) [Concomitant]
  4. PHENERGAN (PROMETHAZINE) [Concomitant]
  5. GEODON (ZIPRASIDONE) [Concomitant]
  6. LOPRESSOR (METOPROLOL TARTRATE) [Concomitant]
  7. SAVELLA (MILNACIPRAN HYDROCHLORIDE) [Concomitant]
  8. LASIX (FUROSEMIDE) [Concomitant]
  9. PREMARIN (ESTROGENS CONJUGATED) [Concomitant]
  10. MIRAPEX (PRAMIPEXOLE DIHYDROCHLORIDE) [Concomitant]
  11. GEMFIBROZIL [Concomitant]
  12. AMITRIPTYLINE [Concomitant]

REACTIONS (1)
  - Abdominal distension [None]
